FAERS Safety Report 5493837-1 (Version None)
Quarter: 2007Q4

REPORT INFORMATION
  Report Type: 
  Country: None (occurrence: None)
  Receive Date: 20071023
  Receipt Date: 20071016
  Transmission Date: 20080405
  Serious: Yes (Hospitalization)
  Sender: FDA-Public Use
  Company Number: US-ABBOTT-07P-163-0421161-00

PATIENT
  Sex: Female
  Weight: 69.916 kg

DRUGS (1)
  1. HUMIRA [Suspect]
     Indication: RHEUMATOID ARTHRITIS
     Route: 058
     Dates: start: 20070701

REACTIONS (4)
  - ACCIDENTAL EXPOSURE [None]
  - LOCAL SWELLING [None]
  - NECK PAIN [None]
  - OSTEOARTHRITIS [None]
